FAERS Safety Report 6269047-7 (Version None)
Quarter: 2009Q3

REPORT INFORMATION
  Report Type: 
  Country: None (occurrence: None)
  Receive Date: 20090715
  Receipt Date: 20090707
  Transmission Date: 20100115
  Serious: Yes (Hospitalization)
  Sender: FDA-Public Use
  Company Number: B0583839A

PATIENT
  Sex: Male

DRUGS (3)
  1. LAPATINIB [Suspect]
     Dates: start: 20090615
  2. XELODA [Suspect]
     Dates: start: 20090615
  3. INSULIN [Concomitant]

REACTIONS (3)
  - DECREASED APPETITE [None]
  - FATIGUE [None]
  - HYPOGLYCAEMIA [None]
